FAERS Safety Report 20826322 (Version 1)
Quarter: 2022Q2

REPORT INFORMATION
  Report Type: Report from Study
  Country: CA (occurrence: CA)
  Receive Date: 20220513
  Receipt Date: 20220513
  Transmission Date: 20220720
  Serious: No
  Sender: FDA-Public Use
  Company Number: CA-BRISTOL-MYERS SQUIBB COMPANY-2022-034761

PATIENT
  Sex: Male
  Weight: 76 kg

DRUGS (1)
  1. REBLOZYL [Suspect]
     Active Substance: LUSPATERCEPT-AAMT
     Indication: Thalassaemia beta
     Dosage: DOSE: 1.33 MG/KG, FREQ: UNAVAILABLE

REACTIONS (2)
  - Product dose omission issue [Unknown]
  - Off label use [Unknown]
